FAERS Safety Report 8614936-9 (Version None)
Quarter: 2012Q3

REPORT INFORMATION
  Report Type: 
  Country: None (occurrence: None)
  Receive Date: 20120809
  Receipt Date: 20120725
  Transmission Date: 20120928
  Serious: Yes (Death, Hospitalization, Other)
  Sender: FDA-Public Use
  Company Number: 2012MA009109

PATIENT
  Age: 32 Year
  Sex: Female

DRUGS (1)
  1. KADIAN [Suspect]
     Dosage: PO
     Route: 048

REACTIONS (8)
  - HYPOXIC-ISCHAEMIC ENCEPHALOPATHY [None]
  - BLOOD GLUCOSE INCREASED [None]
  - WHITE BLOOD CELL COUNT INCREASED [None]
  - CARDIO-RESPIRATORY ARREST [None]
  - ACCIDENTAL OVERDOSE [None]
  - ALANINE AMINOTRANSFERASE INCREASED [None]
  - BLOOD SODIUM DECREASED [None]
  - HEPATOTOXICITY [None]
